FAERS Safety Report 13475463 (Version 3)
Quarter: 2018Q2

REPORT INFORMATION
  Report Type: Spontaneous
  Country: US (occurrence: US)
  Receive Date: 20170424
  Receipt Date: 20180402
  Transmission Date: 20180711
  Serious: Yes (Death, Hospitalization)
  Sender: FDA-Public Use
  Company Number: US-ACTELION-A-NJ2017-152817

PATIENT
  Age: 87 Year
  Sex: Male
  Weight: 57.14 kg

DRUGS (10)
  1. TRACLEER [Suspect]
     Active Substance: BOSENTAN
     Indication: PULMONARY ARTERIAL HYPERTENSION
     Dosage: 125 MG, BID
     Route: 048
     Dates: start: 20120723
  2. REMICADE [Concomitant]
     Active Substance: INFLIXIMAB
  3. PREVACID [Concomitant]
     Active Substance: LANSOPRAZOLE
  4. TAMSULOSIN [Concomitant]
     Active Substance: TAMSULOSIN
  5. OFEV [Concomitant]
     Active Substance: NINTEDANIB
  6. PRAVASTATIN. [Concomitant]
     Active Substance: PRAVASTATIN
  7. BENEFIBER [Concomitant]
     Active Substance: STARCH, WHEAT
  8. IPRATROPIUM BROMIDE. [Concomitant]
     Active Substance: IPRATROPIUM BROMIDE
  9. PREDNISONE. [Concomitant]
     Active Substance: PREDNISONE
  10. ASPIRIN. [Concomitant]
     Active Substance: ASPIRIN

REACTIONS (3)
  - Urinary tract infection [Unknown]
  - Death [Fatal]
  - Body temperature increased [Unknown]

NARRATIVE: CASE EVENT DATE: 20180311
